FAERS Safety Report 11654585 (Version 1)
Quarter: 2015Q4

REPORT INFORMATION
  Report Type: Other
  Country: JO (occurrence: JO)
  Receive Date: 20151023
  Receipt Date: 20151023
  Transmission Date: 20160304
  Serious: Yes (Life-Threatening, Hospitalization)
  Sender: FDA-Public Use
  Company Number: JO-LUPIN PHARMACEUTICALS INC.-2015-03270

PATIENT
  Age: 65 Year
  Sex: Male

DRUGS (1)
  1. CEFTRIAXONE. [Suspect]
     Active Substance: CEFTRIAXONE
     Indication: PRODUCT USED FOR UNKNOWN INDICATION
     Route: 042

REACTIONS (1)
  - Kounis syndrome [Recovered/Resolved]
